FAERS Safety Report 5644580-7 (Version None)
Quarter: 2008Q1

REPORT INFORMATION
  Report Type: 
  Country: None (occurrence: None)
  Receive Date: 20080229
  Receipt Date: 20070319
  Transmission Date: 20080703
  Serious: No
  Sender: FDA-Public Use
  Company Number: A0643719A

PATIENT
  Sex: Female

DRUGS (2)
  1. VALTREX [Suspect]
     Indication: GENITAL HERPES
     Dosage: 500MG PER DAY
     Route: 048
     Dates: start: 20061101
  2. XANAX [Concomitant]

REACTIONS (3)
  - ANXIETY [None]
  - HOT FLUSH [None]
  - PERIPHERAL COLDNESS [None]
